FAERS Safety Report 9614481 (Version 3)
Quarter: 2013Q4

REPORT INFORMATION
  Report Type: Spontaneous
  Country: FR (occurrence: FR)
  Receive Date: 20131011
  Receipt Date: 20131030
  Transmission Date: 20140711
  Serious: Yes (Death, Hospitalization)
  Sender: FDA-Public Use
  Company Number: FR-PFIZER INC-2013291087

PATIENT
  Age: 86 Year
  Sex: Male

DRUGS (19)
  1. CORDARONE [Suspect]
     Dosage: 200 MG, DAILY
     Route: 048
     Dates: start: 20130821
  2. AMIODARONE HCL [Interacting]
     Dosage: 400 MG, DAILY
     Route: 048
     Dates: end: 20130818
  3. DOLIPRANE [Interacting]
     Dosage: 1 UNIT, DAILY
     Route: 048
     Dates: end: 20130818
  4. SEROPLEX [Interacting]
     Dosage: 15 MG, DAILY
     Route: 048
     Dates: end: 201308
  5. PREVISCAN [Interacting]
     Indication: ARRHYTHMIA
     Dosage: 20 MG, DAILY
     Route: 048
     Dates: start: 2009, end: 20130820
  6. FUROSEMIDE [Concomitant]
     Dosage: UNK
     Dates: end: 20130820
  7. LASILIX [Concomitant]
     Dosage: UNK
     Dates: start: 20130821
  8. EBIXA [Concomitant]
  9. MECIR [Concomitant]
  10. DEBRIDAT [Concomitant]
     Dosage: UNK
     Dates: start: 20130821
  11. LYSANXIA [Concomitant]
  12. KALEORID [Concomitant]
  13. PERMIXON [Concomitant]
  14. XANAX [Concomitant]
     Dosage: UNK
     Dates: start: 201308
  15. VALSARTAN [Concomitant]
  16. POLY KARAYA [Concomitant]
     Dosage: UNK
     Dates: end: 20130817
  17. MOVICOL [Concomitant]
     Dosage: UNK
     Dates: end: 20130818
  18. TIAPRIDAL [Concomitant]
     Dosage: UNK
     Dates: start: 201308
  19. AUGMENTIN [Concomitant]
     Indication: ERYSIPELAS
     Dosage: UNK
     Dates: start: 20130821

REACTIONS (4)
  - Drug interaction [Fatal]
  - International normalised ratio increased [Fatal]
  - Pneumonia aspiration [Unknown]
  - Glomerular filtration rate decreased [Unknown]
